FAERS Safety Report 15280925 (Version 2)
Quarter: 2018Q4

REPORT INFORMATION
  Report Type: Spontaneous
  Country: US (occurrence: US)
  Receive Date: 20180815
  Receipt Date: 20180925
  Transmission Date: 20190204
  Serious: Yes (Death)
  Sender: FDA-Public Use
  Company Number: US-TAIHO ONCOLOGY  INC-EU-2018-01176

PATIENT
  Age: 59 Year
  Sex: Male
  Weight: 48.58 kg

DRUGS (1)
  1. LONSURF [Suspect]
     Active Substance: TIPIRACIL HYDROCHLORIDE\TRIFLURIDINE
     Indication: COLON CANCER
     Dosage: CYCLE 1
     Route: 048
     Dates: start: 20180710, end: 20180917

REACTIONS (3)
  - Vomiting [Unknown]
  - Constipation [Unknown]
  - Death [Fatal]

NARRATIVE: CASE EVENT DATE: 201807
